FAERS Safety Report 25756976 (Version 1)
Quarter: 2025Q3

REPORT INFORMATION
  Report Type: Report from Study
  Country: US (occurrence: US)
  Receive Date: 20250903
  Receipt Date: 20250903
  Transmission Date: 20251020
  Serious: Yes (Other)
  Sender: ABBVIE
  Company Number: US-ABBVIE-6441027

PATIENT
  Age: 46 Year
  Sex: Female

DRUGS (1)
  1. SKYRIZI [Suspect]
     Active Substance: RISANKIZUMAB-RZAA
     Indication: Crohn^s disease
     Route: 058
     Dates: start: 20250127, end: 202508

REACTIONS (3)
  - Intestinal anastomosis [Unknown]
  - Drug ineffective [Not Recovered/Not Resolved]
  - Anastomotic fistula [Not Recovered/Not Resolved]

NARRATIVE: CASE EVENT DATE: 20250101
